FAERS Safety Report 24127431 (Version 2)
Quarter: 2024Q3

REPORT INFORMATION
  Report Type: Spontaneous
  Country: US (occurrence: US)
  Receive Date: 20240723
  Receipt Date: 20240807
  Transmission Date: 20241017
  Serious: Yes (Other)
  Sender: SANOFI AVENTIS
  Company Number: US-SA-SAC20240719000232

PATIENT
  Age: 80 Year
  Sex: Male

DRUGS (10)
  1. DUPIXENT [Suspect]
     Active Substance: DUPILUMAB
     Indication: Dermatitis atopic
     Dosage: 300 MG, QOW
     Route: 058
     Dates: start: 20240627
  2. ATORVASTATIN [Concomitant]
     Active Substance: ATORVASTATIN
     Dosage: UNK
  3. DOXYCYCLINE [Concomitant]
     Active Substance: DOXYCYCLINE\DOXYCYCLINE HYCLATE
     Dosage: UNK
  4. EZETIMIBE [Concomitant]
     Active Substance: EZETIMIBE
     Dosage: UNK
  5. FOLIC ACID [Concomitant]
     Active Substance: FOLIC ACID
     Dosage: UNK
  6. HYDROCHLOROTHIAZIDE [Concomitant]
     Active Substance: HYDROCHLOROTHIAZIDE
     Dosage: UNK
  7. LISINOPRIL [Concomitant]
     Active Substance: LISINOPRIL
     Dosage: UNK
  8. NIACINAMIDE [Concomitant]
     Active Substance: NIACINAMIDE
     Dosage: UNK
  9. LEVOTHYROXINE [Concomitant]
     Active Substance: LEVOTHYROXINE\LEVOTHYROXINE SODIUM
     Dosage: UNK
  10. VITAMIN E [Concomitant]
     Active Substance: .ALPHA.-TOCOPHEROL
     Dosage: UNK

REACTIONS (10)
  - Malignant melanoma [Unknown]
  - Rash [Unknown]
  - Blister [Unknown]
  - Skin fissures [Unknown]
  - Dry skin [Unknown]
  - Sleep disorder due to a general medical condition [Unknown]
  - Discharge [Unknown]
  - Tendon rupture [Recovered/Resolved]
  - Skin exfoliation [Unknown]
  - Pruritus [Unknown]

NARRATIVE: CASE EVENT DATE: 20240101
